FAERS Safety Report 18915589 (Version 1)
Quarter: 2021Q1

REPORT INFORMATION
  Report Type: Spontaneous
  Country: US (occurrence: US)
  Receive Date: 20210219
  Receipt Date: 20210219
  Transmission Date: 20210420
  Serious: Yes (Other)
  Sender: FDA-Public Use
  Company Number: US-MYLANLABS-2021M1009721

PATIENT
  Age: 67 Year
  Sex: Male

DRUGS (21)
  1. NORTRIPTYLINE [Concomitant]
     Active Substance: NORTRIPTYLINE
     Indication: PRODUCT USED FOR UNKNOWN INDICATION
     Dosage: 75 MILLIGRAM, QD
     Route: 065
  2. ATORVASTATIN [Concomitant]
     Active Substance: ATORVASTATIN
     Indication: PRODUCT USED FOR UNKNOWN INDICATION
     Dosage: 40 MILLIGRAM, QD
     Route: 065
  3. DRONABINOL. [Interacting]
     Active Substance: DRONABINOL
     Indication: ARTHRALGIA
  4. CANNABIDIOL [Concomitant]
     Active Substance: CANNABIDIOL
     Indication: NECK PAIN
     Dosage: 0.1MG/1ML OIL DROPS
     Route: 060
  5. METFORMIN [Concomitant]
     Active Substance: METFORMIN HYDROCHLORIDE
     Indication: DIABETES MELLITUS
     Dosage: 850 MILLIGRAM, BID
     Route: 065
  6. DRONABINOL. [Interacting]
     Active Substance: DRONABINOL
     Indication: NECK PAIN
     Dosage: 4.9MG/ML OIL DROPS (0:1...
     Route: 060
  7. FLUOXETINE [Concomitant]
     Active Substance: FLUOXETINE HYDROCHLORIDE
     Indication: PRODUCT USED FOR UNKNOWN INDICATION
     Dosage: 20 MILLIGRAM, BID
     Route: 065
  8. LISINOPRIL. [Concomitant]
     Active Substance: LISINOPRIL
     Indication: PRODUCT USED FOR UNKNOWN INDICATION
     Dosage: 20 MILLIGRAM, QD
     Route: 065
  9. WARFARIN [Suspect]
     Active Substance: WARFARIN
     Indication: EMBOLISM VENOUS
     Dosage: 6 MILLIGRAM, ALTERNATE DAY
     Route: 065
  10. ASPIRIN                            /00002701/ [Concomitant]
     Active Substance: ASPIRIN
     Indication: PRODUCT USED FOR UNKNOWN INDICATION
     Dosage: 81 MILLIGRAM, QD
     Route: 065
  11. WARFARIN [Interacting]
     Active Substance: WARFARIN
     Dosage: 7.5 MILLIGRAM, ALTERNATE DAY
     Route: 065
  12. FAMOTIDINE. [Concomitant]
     Active Substance: FAMOTIDINE
     Indication: PRODUCT USED FOR UNKNOWN INDICATION
     Dosage: 20 MILLIGRAM, BID
     Route: 065
  13. DOCUSATE [Concomitant]
     Active Substance: DOCUSATE
     Indication: PRODUCT USED FOR UNKNOWN INDICATION
     Dosage: 100 MILLIGRAM, UP TO 3 TIMES DAILY
     Route: 065
  14. DRONABINOL. [Interacting]
     Active Substance: DRONABINOL
     Indication: NECK PAIN
     Dosage: UP TO 0.1MG/1ML OIL DROPS....
     Route: 060
  15. OMEPRAZOLE. [Concomitant]
     Active Substance: OMEPRAZOLE
     Indication: PRODUCT USED FOR UNKNOWN INDICATION
     Dosage: 20 MILLIGRAM, QD
     Route: 065
  16. GLIPIZIDE. [Concomitant]
     Active Substance: GLIPIZIDE
     Indication: PRODUCT USED FOR UNKNOWN INDICATION
     Dosage: 10 MILLIGRAM, BID
     Route: 065
  17. DRONABINOL. [Interacting]
     Active Substance: DRONABINOL
     Indication: ARTHRALGIA
     Dosage: 1 ML TRICE DAILY (DOUBLING...
     Route: 060
  18. CANNABIDIOL [Concomitant]
     Active Substance: CANNABIDIOL
     Indication: ARTHRALGIA
     Dosage: 5MG/1ML OIL DROPS
     Route: 060
  19. RIVAROXABAN [Concomitant]
     Active Substance: RIVAROXABAN
     Indication: ANTICOAGULANT THERAPY
     Route: 065
  20. ATENOLOL. [Concomitant]
     Active Substance: ATENOLOL
     Indication: PRODUCT USED FOR UNKNOWN INDICATION
     Dosage: 50 MILLIGRAM, QD
     Route: 065
  21. IBUPROFEN. [Concomitant]
     Active Substance: IBUPROFEN
     Indication: PRODUCT USED FOR UNKNOWN INDICATION
     Dosage: 200 MILLIGRAM, PRN...
     Route: 065

REACTIONS (2)
  - Drug interaction [Recovered/Resolved]
  - Anticoagulation drug level above therapeutic [Recovered/Resolved]
